FAERS Safety Report 25305338 (Version 2)
Quarter: 2025Q2

REPORT INFORMATION
  Report Type: Spontaneous
  Country: US (occurrence: US)
  Receive Date: 20250513
  Receipt Date: 20250515
  Transmission Date: 20250716
  Serious: No
  Sender: BAYER HEALTHCARE PHARMACEUTICALS INC.
  Company Number: US-BAYER-2025A063892

PATIENT
  Age: 14 Year
  Sex: Female

DRUGS (7)
  1. ESTRADIOL [Suspect]
     Active Substance: ESTRADIOL
     Indication: Haematocolpos
     Route: 062
  2. CEFTRIAXONE [Concomitant]
     Active Substance: CEFTRIAXONE
     Route: 042
  3. DOXYCYCLINE [Concomitant]
     Active Substance: DOXYCYCLINE
     Route: 042
  4. METRONIDAZOLE [Concomitant]
     Active Substance: METRONIDAZOLE
     Route: 042
  5. BUPIVACAINE [Concomitant]
     Active Substance: BUPIVACAINE
     Route: 030
  6. TRIAMCINOLONE [Concomitant]
     Active Substance: TRIAMCINOLONE
     Route: 030
  7. PROVERA [Concomitant]
     Active Substance: MEDROXYPROGESTERONE ACETATE

REACTIONS (3)
  - Product use in unapproved indication [None]
  - Product prescribing issue [None]
  - Product use issue [None]
